FAERS Safety Report 15576316 (Version 1)
Quarter: 2018Q4

REPORT INFORMATION
  Report Type: Spontaneous
  Country: US (occurrence: US)
  Receive Date: 20181101
  Receipt Date: 20181101
  Transmission Date: 20190205
  Serious: No
  Sender: FDA-Public Use
  Company Number: US-PFIZER INC-2018435569

PATIENT
  Age: 77 Year
  Sex: Female

DRUGS (4)
  1. ETODOLAC. [Suspect]
     Active Substance: ETODOLAC
     Dosage: UNK
  2. DAYPRO [Suspect]
     Active Substance: OXAPROZIN
     Dosage: UNK
  3. KINERET [Suspect]
     Active Substance: ANAKINRA
     Dosage: UNK
  4. GOLD [Suspect]
     Active Substance: GOLD
     Dosage: UNK

REACTIONS (1)
  - Drug hypersensitivity [Unknown]
